APPROVED DRUG PRODUCT: CYCLOSPORINE
Active Ingredient: CYCLOSPORINE
Strength: 0.05%
Dosage Form/Route: EMULSION;OPHTHALMIC
Application: A211943 | Product #001 | TE Code: AB
Applicant: SAPTALIS PHARMACEUTICALS LLC
Approved: Jul 5, 2024 | RLD: No | RS: No | Type: RX